FAERS Safety Report 6195965 (Version 22)
Quarter: 2013Q4

REPORT INFORMATION
  Report Type: Spontaneous
  Country: US (occurrence: US)
  Receive Date: 20061220
  Receipt Date: 20131004
  Transmission Date: 20140711
  Serious: Yes (Death, Hospitalization, Other)
  Sender: FDA-Public Use
  Company Number: PHEH2006US15107

PATIENT
  Sex: Male

DRUGS (22)
  1. ZOMETA [Suspect]
     Indication: PLASMA CELL MYELOMA
     Route: 042
     Dates: start: 20030516
  2. AREDIA [Suspect]
     Route: 042
  3. AUGMENTIN [Concomitant]
  4. PERIDEX [Concomitant]
  5. REVLIMID [Concomitant]
  6. LYRICA [Concomitant]
  7. TYLENOL [Concomitant]
  8. DOXIL [Concomitant]
  9. VINCRISTINE [Concomitant]
  10. DEXAMETHASONE [Concomitant]
  11. MELPHALAN [Concomitant]
  12. TRANSFUSIONS [Concomitant]
  13. CENTRUM [Concomitant]
  14. IRON [Concomitant]
  15. FOLIC ACID [Concomitant]
  16. CELEXA [Concomitant]
  17. ACIPHEX [Concomitant]
  18. COMPAZINE [Concomitant]
  19. DIFLUCAN [Concomitant]
  20. HYDROXYZINE [Concomitant]
  21. PERCOCET [Concomitant]
  22. ARTHOTEC [Concomitant]

REACTIONS (110)
  - Leukaemia [Fatal]
  - Myelodysplastic syndrome [Fatal]
  - Asthenia [Unknown]
  - Second primary malignancy [Unknown]
  - Diastolic dysfunction [Unknown]
  - Left atrial dilatation [Unknown]
  - Atrioventricular block first degree [Unknown]
  - Mitral valve incompetence [Unknown]
  - Tricuspid valve incompetence [Unknown]
  - Bradycardia [Unknown]
  - Orthostatic hypotension [Unknown]
  - Osteonecrosis of jaw [Unknown]
  - Tooth abscess [Unknown]
  - Jaw disorder [Unknown]
  - General physical health deterioration [Unknown]
  - Anxiety [Unknown]
  - Emotional distress [Unknown]
  - Decreased interest [Unknown]
  - Pain [Unknown]
  - Dental fistula [Unknown]
  - Tooth infection [Unknown]
  - Bone disorder [Unknown]
  - Aplastic anaemia [Unknown]
  - Normochromic normocytic anaemia [Unknown]
  - Decreased appetite [Unknown]
  - Weight decreased [Unknown]
  - Pollakiuria [Unknown]
  - Nausea [Unknown]
  - Vomiting [Unknown]
  - Stomatitis [Unknown]
  - Abdominal pain [Unknown]
  - Dry mouth [Unknown]
  - Constipation [Unknown]
  - Intervertebral disc protrusion [Unknown]
  - Renal failure [Unknown]
  - Adenocarcinoma of colon [Unknown]
  - Diverticulum [Unknown]
  - Plasma cell myeloma recurrent [Unknown]
  - Spinal column stenosis [Unknown]
  - Presyncope [Unknown]
  - Pancytopenia [Unknown]
  - Carpal tunnel syndrome [Unknown]
  - Diabetes mellitus [Unknown]
  - Aortic arteriosclerosis [Unknown]
  - Pulmonary hypertension [Unknown]
  - Cardiac murmur [Unknown]
  - Testicular atrophy [Unknown]
  - Insomnia [Unknown]
  - Erectile dysfunction [Unknown]
  - Amnesia [Unknown]
  - Arthralgia [Unknown]
  - Myalgia [Unknown]
  - Hepatic steatosis [Unknown]
  - Hypergammaglobulinaemia benign monoclonal [Unknown]
  - Hot flush [Unknown]
  - Hypoaesthesia [Unknown]
  - Arthritis [Unknown]
  - Electrophoresis abnormal [Unknown]
  - Multiple fractures [Unknown]
  - Glaucoma [Unknown]
  - Maculopathy [Unknown]
  - Vision blurred [Unknown]
  - Dry eye [Unknown]
  - Night blindness [Unknown]
  - Ischaemia [Unknown]
  - Basal cell carcinoma [Unknown]
  - Deafness [Unknown]
  - Hiatus hernia [Unknown]
  - Rib fracture [Unknown]
  - Osteoporosis [Unknown]
  - Osteosclerosis [Unknown]
  - Sinusitis [Unknown]
  - Syncope [Unknown]
  - Hypertrophy [Unknown]
  - Bone loss [Unknown]
  - Vertebral foraminal stenosis [Unknown]
  - Intervertebral disc displacement [Unknown]
  - Exostosis [Unknown]
  - Fall [Unknown]
  - Cerebral atrophy [Unknown]
  - Spinal osteoarthritis [Unknown]
  - Osteopenia [Unknown]
  - Respiratory tract infection [Unknown]
  - Increased upper airway secretion [Unknown]
  - Intervertebral disc degeneration [Unknown]
  - Joint dislocation [Unknown]
  - Granuloma [Unknown]
  - Nasal septum deviation [Unknown]
  - Renal cyst [Unknown]
  - Cough [Unknown]
  - Rectal haemorrhage [Unknown]
  - Bone cancer [Unknown]
  - Presbyoesophagus [Unknown]
  - Neutropenia [Unknown]
  - Kyphosis [Unknown]
  - Oral pain [Unknown]
  - Dyspnoea [Unknown]
  - Back pain [Unknown]
  - Sinus arrhythmia [Unknown]
  - Febrile neutropenia [Unknown]
  - Thrombocytopenia [Unknown]
  - Sinus bradycardia [Unknown]
  - Left ventricular hypertrophy [Unknown]
  - Mitral valve calcification [Unknown]
  - Hypoxia [Unknown]
  - Gingival bleeding [Unknown]
  - Gingival pain [Unknown]
  - Tooth loss [Unknown]
  - Rash [Unknown]
  - Pernicious anaemia [Unknown]
